FAERS Safety Report 7090124-5 (Version None)
Quarter: 2010Q4

REPORT INFORMATION
  Report Type: 
  Country: None (occurrence: None)
  Receive Date: 20101105
  Receipt Date: 20101105
  Transmission Date: 20110411
  Serious: Yes (Other)
  Sender: FDA-Public Use
  Company Number: None

PATIENT
  Sex: Male
  Weight: 72.5755 kg

DRUGS (2)
  1. ALPRAZOLAM [Suspect]
     Indication: ANXIETY
     Dosage: 2MG 3 TIMES DAY MOUTH
     Route: 048
  2. ALPRAZOLAM [Suspect]
     Indication: PANIC ATTACK
     Dosage: 2MG 3 TIMES DAY MOUTH
     Route: 048

REACTIONS (3)
  - DYSPNOEA [None]
  - FOREIGN BODY [None]
  - PRODUCT FORMULATION ISSUE [None]
